FAERS Safety Report 7489639-7 (Version None)
Quarter: 2011Q2

REPORT INFORMATION
  Report Type: 
  Country: None (occurrence: None)
  Receive Date: 20110519
  Receipt Date: 20110511
  Transmission Date: 20111010
  Serious: No
  Sender: FDA-Public Use
  Company Number: US-BIOGENIDEC-2011BI001937

PATIENT
  Age: 53 Year
  Sex: Female

DRUGS (1)
  1. TYSABRI [Suspect]
     Indication: MULTIPLE SCLEROSIS
     Route: 042
     Dates: start: 20100701, end: 20100923

REACTIONS (8)
  - IMMUNOGLOBULINS ABNORMAL [None]
  - ANTIBODY TEST POSITIVE [None]
  - MOTOR DYSFUNCTION [None]
  - MULTIPLE SCLEROSIS RELAPSE [None]
  - BACK PAIN [None]
  - DISORIENTATION [None]
  - HEADACHE [None]
  - GAIT DISTURBANCE [None]
